FAERS Safety Report 19080404 (Version 3)
Quarter: 2021Q2

REPORT INFORMATION
  Report Type: Spontaneous
  Country: IT (occurrence: IT)
  Receive Date: 20210401
  Receipt Date: 20210419
  Transmission Date: 20210717
  Serious: Yes (Other)
  Sender: FDA-Public Use
  Company Number: IT-JNJFOC-20210351028

PATIENT
  Age: 45 Year
  Sex: Female

DRUGS (14)
  1. LAMIVUDINE. [Suspect]
     Active Substance: LAMIVUDINE
     Indication: HIV INFECTION
     Route: 065
  2. TENOFOVIR DISOPROXIL FUMARATE. [Suspect]
     Active Substance: TENOFOVIR DISOPROXIL FUMARATE
     Route: 065
  3. RALTEGRAVIR. [Suspect]
     Active Substance: RALTEGRAVIR
     Indication: HIV INFECTION
     Route: 048
  4. MARAVIROC [Suspect]
     Active Substance: MARAVIROC
     Indication: HIV INFECTION
     Route: 065
  5. RITONAVIR. [Suspect]
     Active Substance: RITONAVIR
     Indication: HIV INFECTION
     Route: 065
  6. LAMIVUDINE. [Suspect]
     Active Substance: LAMIVUDINE
     Route: 065
  7. PREZISTA [Suspect]
     Active Substance: DARUNAVIR ETHANOLATE
     Indication: HIV INFECTION
     Route: 048
  8. TENOFOVIR DISOPROXIL FUMARATE. [Suspect]
     Active Substance: TENOFOVIR DISOPROXIL FUMARATE
     Indication: HIV INFECTION
     Route: 065
  9. RITONAVIR. [Suspect]
     Active Substance: RITONAVIR
     Dosage: BID
     Route: 065
  10. DOLUTEGRAVIR [Suspect]
     Active Substance: DOLUTEGRAVIR
     Indication: HIV INFECTION
     Route: 065
  11. ZIDOVUDINE. [Suspect]
     Active Substance: ZIDOVUDINE
     Indication: HIV INFECTION
     Route: 065
  12. PREZISTA [Suspect]
     Active Substance: DARUNAVIR ETHANOLATE
     Dosage: BID
     Route: 048
  13. RITONAVIR. [Suspect]
     Active Substance: RITONAVIR
     Route: 065
  14. ZIDOVUDINE. [Suspect]
     Active Substance: ZIDOVUDINE
     Route: 065

REACTIONS (4)
  - Treatment noncompliance [Unknown]
  - Drug ineffective [Unknown]
  - CSF HIV escape syndrome [Recovering/Resolving]
  - Labelled drug-drug interaction issue [Unknown]
